FAERS Safety Report 8043279-X (Version None)
Quarter: 2012Q1

REPORT INFORMATION
  Report Type: 
  Country: None (occurrence: None)
  Receive Date: 20120112
  Receipt Date: 20120104
  Transmission Date: 20120608
  Serious: Yes (Death)
  Sender: FDA-Public Use
  Company Number: US-GLAXOSMITHKLINE-A0915582A

PATIENT
  Age: 70 Year
  Sex: Male
  Weight: 90.9 kg

DRUGS (5)
  1. INSULIN [Concomitant]
  2. PEPCID [Concomitant]
  3. LOPRESSOR [Concomitant]
  4. AVANDAMET [Suspect]
     Indication: DIABETES MELLITUS
     Route: 048
     Dates: start: 20100517, end: 20100616
  5. LIPITOR [Concomitant]

REACTIONS (2)
  - DEATH [None]
  - CARDIAC ARREST [None]
